FAERS Safety Report 7485288-5 (Version None)
Quarter: 2011Q2

REPORT INFORMATION
  Report Type: 
  Country: None (occurrence: None)
  Receive Date: 20110517
  Receipt Date: 20101216
  Transmission Date: 20111010
  Serious: Yes (Other)
  Sender: FDA-Public Use
  Company Number: CH-BAYER-2010-004855

PATIENT
  Age: 66 Year
  Sex: Male

DRUGS (5)
  1. PLAVIX [Suspect]
     Dosage: DAILY DOSE 75 MG
     Dates: start: 20090131
  2. ENALAPRIL MALEATE AND HYDROCHLOROTHIAZIDE [Interacting]
     Indication: ESSENTIAL HYPERTENSION
     Dosage: DAILY DOSE 75 MG
     Route: 048
     Dates: end: 20090109
  3. ATORVASTATIN CALCIUM [Suspect]
     Dosage: DAILY DOSE 40 MG
     Dates: start: 20090107
  4. ASPIRIN [Interacting]
     Indication: ARTERIOSCLEROSIS CORONARY ARTERY
     Dosage: DAILY DOSE 100 MG
     Route: 048
     Dates: start: 20090107, end: 20090109
  5. NORVASC [Suspect]
     Indication: ESSENTIAL HYPERTENSION
     Dosage: DAILY DOSE 5 MG

REACTIONS (3)
  - DRUG HYPERSENSITIVITY [None]
  - TYPE I HYPERSENSITIVITY [None]
  - ANGIOEDEMA [None]
